FAERS Safety Report 9310502 (Version 4)
Quarter: 2013Q3

REPORT INFORMATION
  Report Type: Spontaneous
  Country: US (occurrence: US)
  Receive Date: 20130527
  Receipt Date: 20130822
  Transmission Date: 20140515
  Serious: Yes (Other)
  Sender: FDA-Public Use
  Company Number: US-PFIZER INC-2013160651

PATIENT
  Age: 55 Year
  Sex: Female

DRUGS (4)
  1. CHANTIX [Suspect]
     Indication: SMOKING CESSATION THERAPY
     Dosage: UNK
     Route: 048
  2. CHANTIX [Suspect]
     Indication: TOBACCO USER
     Dosage: UNK
  3. CHANTIX [Suspect]
     Dosage: (0.5-1)MG, DAILY
     Route: 048
     Dates: start: 20120207
  4. CHANTIX [Suspect]
     Dosage: (0.5-1)MG, DAILY
     Route: 048
     Dates: start: 20130702

REACTIONS (2)
  - Arthropathy [Unknown]
  - Insomnia [Not Recovered/Not Resolved]
